FAERS Safety Report 9070067 (Version 1)
Quarter: 2013Q1

REPORT INFORMATION
  Report Type: Report from Study
  Country: US (occurrence: US)
  Receive Date: 20130129
  Receipt Date: 20130129
  Transmission Date: 20140127
  Serious: No
  Sender: FDA-Public Use
  Company Number: US-ABBOTT-12P-163-0936535-00

PATIENT
  Age: 30 Year
  Sex: Male

DRUGS (4)
  1. HUMIRA 40 MG/0.8 ML PEN [Suspect]
     Indication: CROHN^S DISEASE
     Dates: start: 20120422
  2. PREDNISONE [Concomitant]
     Indication: CROHN^S DISEASE
     Dosage: 5-10MG DAILY
  3. PREDNISONE [Concomitant]
     Dosage: 5MG DAILY
     Dates: start: 20120506
  4. B12 [Concomitant]
     Indication: HYPOVITAMINOSIS
     Dosage: WEEKLY

REACTIONS (4)
  - Paraesthesia oral [Recovering/Resolving]
  - Paraesthesia [Recovering/Resolving]
  - Paraesthesia [Recovering/Resolving]
  - Paraesthesia [Recovering/Resolving]
